FAERS Safety Report 4877135-2 (Version None)
Quarter: 2005Q4

REPORT INFORMATION
  Report Type: 
  Country: None (occurrence: None)
  Receive Date: 20051206
  Receipt Date: 20050824
  Transmission Date: 20060501
  Serious: No
  Sender: FDA-Public Use
  Company Number: USA0508106376

PATIENT
  Age: 73 Year
  Sex: Male

DRUGS (2)
  1. CYMBALTA [Suspect]
     Indication: TESTICULAR PAIN
     Dosage: 60 MG DAY
     Dates: start: 20050701
  2. MAVIK [Concomitant]

REACTIONS (2)
  - BLOOD GLUCOSE INCREASED [None]
  - DRUG INEFFECTIVE [None]
